FAERS Safety Report 24052403 (Version 1)
Quarter: 2024Q3

REPORT INFORMATION
  Report Type: Spontaneous
  Country: US (occurrence: US)
  Receive Date: 20240704
  Receipt Date: 20240704
  Transmission Date: 20241017
  Serious: No
  Sender: BAUSCH AND LOMB
  Company Number: US-BAUSCHBL-2024BNL029257

PATIENT
  Age: 62 Year
  Sex: Male

DRUGS (4)
  1. XIIDRA [Suspect]
     Active Substance: LIFITEGRAST
     Indication: Dry eye
     Route: 047
     Dates: start: 20240531, end: 20240602
  2. XIIDRA [Suspect]
     Active Substance: LIFITEGRAST
     Route: 047
     Dates: start: 20240613, end: 20240625
  3. REFRESH SOLUTION NOS [Concomitant]
     Active Substance: CARBOXYMETHYLCELLULOSE SODIUM\GLYCERIN
     Indication: Product used for unknown indication
     Route: 047
  4. VITAMIN C [Concomitant]
     Active Substance: ASCORBIC ACID
     Indication: Product used for unknown indication
     Route: 048

REACTIONS (15)
  - Sputum discoloured [Recovered/Resolved]
  - Eyelid margin crusting [Not Recovered/Not Resolved]
  - Ocular hyperaemia [Unknown]
  - Eye pain [Unknown]
  - Photophobia [Unknown]
  - Visual impairment [Unknown]
  - Eye irritation [Recovered/Resolved]
  - Vision blurred [Not Recovered/Not Resolved]
  - Eye discharge [Unknown]
  - Headache [Unknown]
  - Product use complaint [Unknown]
  - Product dose omission issue [Unknown]
  - Multiple use of single-use product [Unknown]
  - Exposure via skin contact [Unknown]
  - Accidental exposure to product [Unknown]

NARRATIVE: CASE EVENT DATE: 20240101
